FAERS Safety Report 6703596-X (Version None)
Quarter: 2010Q2

REPORT INFORMATION
  Report Type: 
  Country: None (occurrence: None)
  Receive Date: 20100430
  Receipt Date: 20100427
  Transmission Date: 20101027
  Serious: Yes (Hospitalization)
  Sender: FDA-Public Use
  Company Number: US-B.I. PHARMACEUTICALS,INC./RIDGEFIELD-2010-BP-04858BP

PATIENT
  Sex: Female

DRUGS (5)
  1. SPIRIVA [Suspect]
     Indication: EMPHYSEMA
     Dosage: 18 MCG
     Route: 055
     Dates: start: 20100301
  2. XANAX [Concomitant]
     Indication: ANXIETY
  3. COREG [Concomitant]
     Indication: HYPERTENSION
  4. COREG [Concomitant]
     Indication: ARRHYTHMIA
  5. ALBUTEROL [Concomitant]
     Indication: EMPHYSEMA

REACTIONS (6)
  - ABDOMINAL PAIN UPPER [None]
  - CHOLECYSTECTOMY [None]
  - DIARRHOEA [None]
  - DRY MOUTH [None]
  - FLATULENCE [None]
  - INCORRECT ROUTE OF DRUG ADMINISTRATION [None]
